FAERS Safety Report 8687976 (Version 2)
Quarter: 2012Q4

REPORT INFORMATION
  Report Type: 
  Country: GB (occurrence: GB)
  Receive Date: 20120727
  Receipt Date: 20120911
  Transmission Date: 20130627
  Serious: Yes (Hospitalization)
  Sender: FDA-Public Use
  Company Number: GB-TEVA-348733ISR

PATIENT
  Age: 60 Year
  Sex: Male
  Weight: 74 kg

DRUGS (2)
  1. LEVOTHYROXINE [Suspect]
     Indication: THYROID HORMONE REPLACEMENT THERAPY
     Dosage: 150 - 200mg per day
     Route: 048
     Dates: start: 20101001, end: 20110930
  2. SOTALOL [Concomitant]

REACTIONS (8)
  - Atrial fibrillation [Recovered/Resolved with Sequelae]
  - Fatigue [Recovered/Resolved]
  - Thyroxine decreased [Recovered/Resolved]
  - Blood thyroid stimulating hormone increased [Recovered/Resolved]
  - Product substitution issue [Recovered/Resolved]
  - Thyroxine abnormal [Recovered/Resolved]
  - Heart rate irregular [Recovered/Resolved]
  - Heart rate irregular [Recovered/Resolved]
